FAERS Safety Report 9134591 (Version 1)
Quarter: 2013Q1

REPORT INFORMATION
  Report Type: Spontaneous
  Country: US (occurrence: US)
  Receive Date: 20130304
  Receipt Date: 20130304
  Transmission Date: 20140127
  Serious: No
  Sender: FDA-Public Use
  Company Number: US-PFIZER INC-2013069866

PATIENT
  Age: 58 Year
  Sex: Male
  Weight: 90.7 kg

DRUGS (5)
  1. ALPRAZOLAM [Suspect]
     Indication: PANIC ATTACK
     Dosage: 0.5 MG, 2X/DAY
     Route: 048
     Dates: start: 2010
  2. ALPRAZOLAM [Suspect]
     Dosage: 1 MG, 4X/DAY
     Route: 048
  3. MS-CONTIN [Concomitant]
     Indication: PAIN
     Dosage: 200 MG, 2X/DAY
  4. NORCO [Concomitant]
     Indication: PAIN
     Dosage: 10/325 MG, UNK
  5. COUMADINE [Concomitant]
     Indication: COAGULOPATHY
     Dosage: UNK

REACTIONS (1)
  - Somnolence [Recovered/Resolved]
